FAERS Safety Report 6946216-1 (Version None)
Quarter: 2010Q3

REPORT INFORMATION
  Report Type: 
  Country: None (occurrence: None)
  Receive Date: 20100823
  Receipt Date: 20100810
  Transmission Date: 20110219
  Serious: Yes (Hospitalization)
  Sender: FDA-Public Use
  Company Number: 1000015604

PATIENT
  Age: 69 Year
  Sex: Male
  Weight: 97 kg

DRUGS (10)
  1. CELEXA [Suspect]
     Indication: DEPRESSION
     Dosage: 40 MG (40 MG,1 IN 1 D),ORAL
     Route: 048
     Dates: start: 20051022, end: 20100410
  2. BLINDED STUDY DRUG [Suspect]
     Indication: OSTEOARTHRITIS
     Dosage: TWO DAILY, ORAL
     Route: 048
     Dates: start: 20081001
  3. WELLBUTRIN [Suspect]
     Indication: DEPRESSION
     Dosage: 300 MG (300 MG,1 IN 1 D),ORAL
     Route: 048
     Dates: start: 20070101, end: 20100406
  4. ZOCOR [Concomitant]
  5. ALDACTONE [Concomitant]
  6. ALTACE [Concomitant]
  7. ASPIRIN [Concomitant]
  8. AMBIEN [Concomitant]
  9. TOPROL-XL [Concomitant]
  10. RISPERDAL [Concomitant]

REACTIONS (5)
  - AORTIC VALVE DISEASE [None]
  - CONDUCTION DISORDER [None]
  - MITRAL VALVE CALCIFICATION [None]
  - SYNCOPE [None]
  - VENTRICULAR TACHYCARDIA [None]
